FAERS Safety Report 4980243-9 (Version None)
Quarter: 2006Q2

REPORT INFORMATION
  Report Type: 
  Country: None (occurrence: None)
  Receive Date: 20060424
  Receipt Date: 20060123
  Transmission Date: 20061013
  Serious: Yes (Death, Other)
  Sender: FDA-Public Use
  Company Number: PHFR2006GB00638

PATIENT
  Age: 68 Year
  Sex: Male

DRUGS (19)
  1. PANTOPRAZOLE SODIUM [Suspect]
     Dosage: 20 MG, QD
     Route: 048
  2. ATORVASTATIN [Concomitant]
     Indication: HYPERLIPIDAEMIA
     Dosage: 10 MG, QD
     Route: 048
  3. SENNA [Concomitant]
     Indication: CONSTIPATION
     Dosage: 7.5 - 15MG BID
     Route: 048
  4. NYSTATIN [Concomitant]
     Indication: CANDIDIASIS
     Route: 048
  5. GABAPENTIN [Concomitant]
     Indication: NEURALGIA
     Dosage: 300 MG, BID
     Route: 048
  6. DOCUSATE [Concomitant]
     Indication: CONSTIPATION
     Dosage: 100-700MG BID
     Route: 048
  7. ZOPICLONE [Concomitant]
     Indication: INSOMNIA
     Dosage: 3.75 MG, QD
     Route: 048
  8. OXYCONTIN [Concomitant]
     Indication: PAIN
     Dosage: 30 MG, BID
     Route: 048
  9. OXYCONTIN [Concomitant]
     Dosage: 10 MG, BID
     Route: 065
  10. OXYCONTIN [Concomitant]
     Dosage: 20 MG, BID
     Route: 065
  11. DIAZEPAM [Concomitant]
     Indication: ANXIETY
     Dosage: 5 MG, QD
     Route: 048
  12. QUININE SULFATE [Suspect]
     Indication: MUSCLE SPASMS
     Dosage: 200 MG, QD
     Route: 048
  13. INDORAMIN [Suspect]
     Dosage: 20MG DAILY
     Route: 048
  14. TRAMADOL HCL [Concomitant]
     Dosage: 50 MG, QID
     Route: 065
  15. MORPHINE [Concomitant]
     Indication: PAIN
     Dosage: 10 MG, BID
     Route: 065
  16. PAMIDRONATE DISODIUM [Suspect]
     Indication: HYPERCALCAEMIA
     Dosage: UNK, UNK
     Dates: start: 20020101, end: 20030513
  17. DICLOFENAC SODIUM [Suspect]
     Indication: PAIN
     Dosage: 75 MG, BID
     Dates: start: 20020201, end: 20020301
  18. ZOMETA [Suspect]
     Indication: MULTIPLE MYELOMA
     Dosage: 4MG IN 100ML OVER 15MINS
     Dates: start: 20030612
  19. THALIDOMIDE [Suspect]
     Indication: MULTIPLE MYELOMA
     Dosage: 100 MG, QD
     Route: 048

REACTIONS (8)
  - AGITATION [None]
  - BLOOD CREATININE INCREASED [None]
  - BLOOD POTASSIUM INCREASED [None]
  - BLOOD SODIUM DECREASED [None]
  - DRUG INTERACTION [None]
  - RENAL FAILURE ACUTE [None]
  - SOMNOLENCE [None]
  - URINE OUTPUT DECREASED [None]
